FAERS Safety Report 22912779 (Version 2)
Quarter: 2023Q4

REPORT INFORMATION
  Report Type: Spontaneous
  Country: PK (occurrence: PK)
  Receive Date: 20230906
  Receipt Date: 20231012
  Transmission Date: 20240110
  Serious: Yes (Other)
  Sender: FDA-Public Use
  Company Number: PK-PFIZER INC-PV202300150071

PATIENT
  Age: 43 Year
  Sex: Female

DRUGS (6)
  1. IXIFI [Suspect]
     Active Substance: INFLIXIMAB-QBTX
     Indication: Ankylosing spondylitis
     Dosage: 300 MG
  2. IXIFI [Suspect]
     Active Substance: INFLIXIMAB-QBTX
     Dosage: 200 MG
     Dates: start: 20230530
  3. METHOTREXATE [Concomitant]
     Active Substance: METHOTREXATE
     Dosage: 12.5MG/WT
  4. METHOTREXATE [Concomitant]
     Active Substance: METHOTREXATE
     Dosage: 2.5MG, 3 TABS FRIDAY, 3 TABS SATURDAY
  5. FOLIC ACID [Concomitant]
     Active Substance: FOLIC ACID
     Dosage: 2 TABS ON TUESDAY
  6. INDROP D [Concomitant]
     Dosage: 1 CAP ONCE A MONTH

REACTIONS (3)
  - Uveitis [Unknown]
  - Pain in extremity [Unknown]
  - Arthralgia [Unknown]
